FAERS Safety Report 25289237 (Version 5)
Quarter: 2025Q3

REPORT INFORMATION
  Report Type: Report from Study
  Country: US (occurrence: US)
  Receive Date: 20250509
  Receipt Date: 20250801
  Transmission Date: 20251021
  Serious: Yes (Hospitalization, Other)
  Sender: UCB
  Company Number: US-UCBSA-2025026143

PATIENT
  Age: 23 Year
  Sex: Male
  Weight: 46.3 kg

DRUGS (25)
  1. FINTEPLA [Suspect]
     Active Substance: FENFLURAMINE
     Indication: Severe myoclonic epilepsy of infancy
     Dosage: 5.5 MILLILITER, 2X/DAY (BID)
     Dates: start: 20210722
  2. FINTEPLA [Suspect]
     Active Substance: FENFLURAMINE
     Dates: start: 20240820
  3. FINTEPLA [Suspect]
     Active Substance: FENFLURAMINE
     Dosage: 11 MILLIGRAM, ONCE DAILY (QD)
     Dates: start: 20250331
  4. FINTEPLA [Suspect]
     Active Substance: FENFLURAMINE
     Dosage: 5.5 MILLILITER, 2X/DAY (BID)
  5. FINTEPLA [Suspect]
     Active Substance: FENFLURAMINE
     Dosage: 5.5 MILLILITER, 2X/DAY (BID)
  6. POTASSIUM BROMIDE [Suspect]
     Active Substance: POTASSIUM BROMIDE
     Indication: Product used for unknown indication
     Dosage: 500 MILLIGRAM, 2X/DAY (BID)
     Dates: start: 202502
  7. EPIDIOLEX [Concomitant]
     Active Substance: CANNABIDIOL
     Indication: Product used for unknown indication
  8. ONFI [Concomitant]
     Active Substance: CLOBAZAM
     Indication: Product used for unknown indication
  9. ONFI [Concomitant]
     Active Substance: CLOBAZAM
  10. DIASTAT ACUDIAL [Concomitant]
     Active Substance: DIAZEPAM
     Indication: Product used for unknown indication
  11. ALBUTEROL SULFATE [Concomitant]
     Active Substance: ALBUTEROL SULFATE
     Indication: Product used for unknown indication
  12. ALPHA LIPOIC ACID [Concomitant]
     Active Substance: .ALPHA.-LIPOIC ACID
     Indication: Product used for unknown indication
     Dosage: 1 CAPSULE BY PER G TUBE ROUTE 1 (ONE) TIME
  13. DIETARY SUPPLEMENT [Concomitant]
     Active Substance: DIETARY SUPPLEMENT
     Indication: Product used for unknown indication
     Dosage: 38.5 G BY PER G TUBE ROUTE 5 (FIVE) TIMES A DAY
  14. SYMBICORT [Concomitant]
     Active Substance: BUDESONIDE\FORMOTEROL FUMARATE DIHYDRATE
     Indication: Nasal congestion
     Dosage: 160-4.5 MCG/ACT INHALER, INHALE 2 PUFFS 2
  15. CHOLECALCIFEROL [Concomitant]
     Active Substance: CHOLECALCIFEROL
     Indication: Product used for unknown indication
  16. FYCOMPA [Concomitant]
     Active Substance: PERAMPANEL
     Indication: Product used for unknown indication
     Dosage: 2 MG TABLET, 2 TABLETS (4 MG TOTAL) BY PER G TUBE ROUTE EVERY NIGHT
  17. LINZESS [Concomitant]
     Active Substance: LINACLOTIDE
     Indication: Product used for unknown indication
  18. THIAMINE [Concomitant]
     Active Substance: THIAMINE
     Indication: Product used for unknown indication
     Dosage: 100 MG TABLET, 1 TABLET (100 MG TOTAL) BY PER G TUBE ROUTE IN THE MORNING AND 1 TABLET (100 MG TOTAL
  19. VALTOCO [Concomitant]
     Active Substance: DIAZEPAM
     Indication: Seizure cluster
  20. CARNITOR [Concomitant]
     Active Substance: LEVOCARNITINE
     Indication: Product used for unknown indication
  21. DIETARY SUPPLEMENT [Concomitant]
     Active Substance: DIETARY SUPPLEMENT
     Indication: Product used for unknown indication
     Route: 048
  22. LYRICA [Concomitant]
     Active Substance: PREGABALIN
     Indication: Product used for unknown indication
     Dosage: 300 MG CAPSULE, 1 CAPSULE (300 MG TOTAL) BY PER G TUBE ROUTE IN THE MORNING AND 1 CAPSULE (300 MG TO
  23. MYSOLINE [Concomitant]
     Active Substance: PRIMIDONE
     Indication: Product used for unknown indication
     Dosage: 50 MG TABLET, 2 TABLETS (100 MG TOTAL) BY PER G TUBE ROUTE IN THE MORNING AND 2 TABLETS (100 MG TOTA
  24. RISPERDAL [Concomitant]
     Active Substance: RISPERIDONE
     Indication: Product used for unknown indication
     Dosage: 1 MG TABLET, 2 TABLETS (2 MG TOTAL) BY PER G TUBE ROUTE IN THE MORNING AND 2 TABLETS (2 MG TOTAL) AT
  25. MYCOSTATIN [Concomitant]
     Active Substance: NYSTATIN
     Indication: Product used for unknown indication
     Dosage: 100000 UNIT /ML SUSPENSION, TAKE 5 ML (500,000 UNITS TOTAL) BY MOUTH 4 (FOUR) TIMES A DAY. SWISH IN

REACTIONS (7)
  - Hospitalisation [Not Recovered/Not Resolved]
  - Mitral valve incompetence [Not Recovered/Not Resolved]
  - Mitral valve thickening [Unknown]
  - Seizure [Unknown]
  - Ear infection [Not Recovered/Not Resolved]
  - Neuralgia [Not Recovered/Not Resolved]
  - Somnolence [Not Recovered/Not Resolved]

NARRATIVE: CASE EVENT DATE: 20241101
